FAERS Safety Report 25480251 (Version 1)
Quarter: 2025Q2

REPORT INFORMATION
  Report Type: Spontaneous
  Country: US (occurrence: US)
  Receive Date: 20250625
  Receipt Date: 20250625
  Transmission Date: 20250716
  Serious: No
  Sender: ELI LILLY AND COMPANY
  Company Number: US-ELI_LILLY_AND_COMPANY-US202506018488

PATIENT
  Age: 37 Year

DRUGS (1)
  1. TRULICITY [Suspect]
     Active Substance: DULAGLUTIDE
     Indication: Product used for unknown indication
     Route: 065

REACTIONS (5)
  - Nasopharyngitis [Unknown]
  - Influenza [Recovered/Resolved]
  - Muscle spasms [Unknown]
  - Dizziness [Unknown]
  - Sluggishness [Recovered/Resolved]
